FAERS Safety Report 17640988 (Version 1)
Quarter: 2020Q2

REPORT INFORMATION
  Report Type: Report from Study
  Country: CH (occurrence: CH)
  Receive Date: 20200408
  Receipt Date: 20200408
  Transmission Date: 20200713
  Serious: Yes (Hospitalization)
  Sender: FDA-Public Use
  Company Number: CH-ROCHE-2570519

PATIENT
  Age: 57 Year

DRUGS (2)
  1. PERTUZUMAB. [Suspect]
     Active Substance: PERTUZUMAB
     Indication: BREAST CANCER METASTATIC
     Dosage: ON 26/FEB/2020, MOST RECENT DOSE ADMINISTERED PRIOR TO ADVERSE EVENT ONSET.
     Route: 042
     Dates: start: 20131126
  2. TRASTUZUMAB. [Suspect]
     Active Substance: TRASTUZUMAB
     Indication: BREAST CANCER METASTATIC
     Dosage: ON 26/FEB/2020, MOST RECENT DOSE WAS ADMINISTERED
     Route: 042
     Dates: start: 20131126

REACTIONS (1)
  - Muscle spasms [Recovered/Resolved with Sequelae]

NARRATIVE: CASE EVENT DATE: 20200309
